FAERS Safety Report 5905421-3 (Version None)
Quarter: 2008Q4

REPORT INFORMATION
  Report Type: 
  Country: None (occurrence: None)
  Receive Date: 20081002
  Receipt Date: 20081001
  Transmission Date: 20090506
  Serious: Yes (Hospitalization)
  Sender: FDA-Public Use
  Company Number: PHEH1997US00594

PATIENT
  Sex: Female
  Weight: 67 kg

DRUGS (9)
  1. NEORAL [Suspect]
     Route: 048
     Dates: start: 19960213
  2. PREDNISONE [Concomitant]
  3. DYNACIRC [Concomitant]
  4. TENORMIN [Concomitant]
  5. PRAVACHOL [Concomitant]
  6. PHENERGAN HCL [Concomitant]
  7. PEPCID [Concomitant]
  8. MORPHINE SULFATE INJ [Concomitant]
  9. VICODIN [Concomitant]

REACTIONS (1)
  - SEPSIS [None]
